FAERS Safety Report 13457118 (Version 2)
Quarter: 2017Q2

REPORT INFORMATION
  Report Type: Spontaneous
  Country: US (occurrence: US)
  Receive Date: 20170419
  Receipt Date: 20170605
  Transmission Date: 20170830
  Serious: Yes (Hospitalization)
  Sender: FDA-Public Use
  Company Number: US-UCBSA-2017014855

PATIENT
  Age: 69 Year
  Sex: Female
  Weight: 47 kg

DRUGS (5)
  1. LEVETIRACETAM. [Suspect]
     Active Substance: LEVETIRACETAM
     Indication: SEIZURE
     Dosage: 500 MG, 2X/DAY (BID)CRUSHED
     Route: 048
     Dates: start: 2012
  2. LEVETIRACETAM. [Suspect]
     Active Substance: LEVETIRACETAM
     Dosage: 500MG WAS GIVEN INADVERTENTLY IN HOSPITAL FOR 2 DOSES
     Dates: start: 20170401, end: 20170401
  3. LEVETIRACETAM. [Suspect]
     Active Substance: LEVETIRACETAM
     Dosage: 1000 MG, 2X/DAY (BID)
     Route: 048
     Dates: start: 20170408, end: 20170410
  4. LEVETIRACETAM. [Suspect]
     Active Substance: LEVETIRACETAM
     Dosage: 500 MG, CRUSHED 2X/DAY (BID)
     Route: 048
     Dates: start: 201601, end: 2016
  5. LEVETIRACETAM. [Suspect]
     Active Substance: LEVETIRACETAM
     Dosage: 750 MG, CRUSHED 2X/DAY (BID)
     Route: 048
     Dates: start: 2016, end: 20170407

REACTIONS (6)
  - Seizure [Recovered/Resolved]
  - Muscle twitching [Not Recovered/Not Resolved]
  - Hydrocephalus [Recovering/Resolving]
  - Tremor [Not Recovered/Not Resolved]
  - Flushing [Recovered/Resolved]
  - Feeling abnormal [Not Recovered/Not Resolved]

NARRATIVE: CASE EVENT DATE: 2012
